FAERS Safety Report 10110771 (Version 1)
Quarter: 2014Q2

REPORT INFORMATION
  Report Type: Spontaneous
  Country: CA (occurrence: CA)
  Receive Date: 20140425
  Receipt Date: 20140425
  Transmission Date: 20141212
  Serious: Yes (Other)
  Sender: FDA-Public Use
  Company Number: CA-VERTEX PHARMACEUTICALS INC-2014-002059

PATIENT
  Age: 29 Year
  Sex: Male

DRUGS (6)
  1. INCIVEK [Suspect]
     Indication: HEPATITIS C
     Dosage: 750 MG, TID
     Route: 048
  2. PEGASYS [Suspect]
     Indication: HEPATITIS C
     Dosage: 180 ?G, QW
     Route: 058
  3. RIBAVIRIN [Suspect]
     Indication: HEPATITIS C
     Dosage: 100 MG, QD
     Route: 048
  4. GRAVOL [Concomitant]
  5. IBUPROFENUM [Concomitant]
  6. TYLENOL WITH CODEINE [Concomitant]

REACTIONS (2)
  - Anal abscess [Unknown]
  - Irritability [Unknown]
